FAERS Safety Report 5018194-6 (Version None)
Quarter: 2006Q2

REPORT INFORMATION
  Report Type: 
  Country: None (occurrence: None)
  Receive Date: 20060530
  Receipt Date: 20060517
  Transmission Date: 20061013
  Serious: Yes (Death, Other)
  Sender: FDA-Public Use
  Company Number: 2006066217

PATIENT
  Age: 66 Year
  Sex: Male

DRUGS (5)
  1. PREDNISOLONE [Suspect]
     Indication: ILL-DEFINED DISORDER
  2. CYCLOPHOSPHAMIDE [Suspect]
     Indication: ILL-DEFINED DISORDER
  3. CHLORAMBUCIL (CHLORAMBUCIL) [Concomitant]
  4. VINCRISTINE [Suspect]
     Indication: ILL-DEFINED DISORDER
  5. RITUXIMAB (RITUXIMAB) [Suspect]
     Indication: ILL-DEFINED DISORDER

REACTIONS (5)
  - DISEASE RECURRENCE [None]
  - LIVER DISORDER [None]
  - METASTASES TO LIVER [None]
  - T-CELL LYMPHOMA [None]
  - THERAPY NON-RESPONDER [None]
